FAERS Safety Report 10518882 (Version 1)
Quarter: 2014Q4

REPORT INFORMATION
  Report Type: Spontaneous
  Country: US (occurrence: None)
  Receive Date: 20141014
  Receipt Date: 20141014
  Transmission Date: 20150528
  Serious: Yes (Life-Threatening, Hospitalization)
  Sender: FDA-Public Use
  Company Number: None

PATIENT
  Age: 24 Year
  Sex: Female
  Weight: 58.97 kg

DRUGS (1)
  1. SAPHRIS [Suspect]
     Active Substance: ASENAPINE MALEATE
     Indication: PSYCHOTIC DISORDER
     Dosage: 5/10 MG?2 PILLS?BEDTIME?BY MOUTH/ORAL
     Route: 048
     Dates: start: 20130712, end: 20130930

REACTIONS (2)
  - Sleep disorder [None]
  - Dizziness [None]

NARRATIVE: CASE EVENT DATE: 20130709
